FAERS Safety Report 5405547-7 (Version None)
Quarter: 2007Q3

REPORT INFORMATION
  Report Type: 
  Country: None (occurrence: None)
  Receive Date: 20070803
  Receipt Date: 20070726
  Transmission Date: 20080115
  Serious: Yes (Death)
  Sender: FDA-Public Use
  Company Number: JP-PFIZER INC-2007062422

PATIENT
  Age: 71 Year
  Sex: Female

DRUGS (3)
  1. FARMORUBICINA RD [Suspect]
     Indication: BREAST CANCER
     Dosage: DAILY DOSE:130MG
     Route: 042
     Dates: start: 20070713, end: 20070713
  2. 5-FU [Suspect]
     Indication: BREAST CANCER
     Dosage: DAILY DOSE:650MG
     Route: 042
     Dates: start: 20070713, end: 20070713
  3. ENDOXAN [Suspect]
     Indication: BREAST CANCER
     Dosage: DAILY DOSE:650MG
     Route: 042
     Dates: start: 20070713, end: 20070713

REACTIONS (2)
  - ACUTE RESPIRATORY DISTRESS SYNDROME [None]
  - INTERSTITIAL LUNG DISEASE [None]
